FAERS Safety Report 18148533 (Version 2)
Quarter: 2020Q3

REPORT INFORMATION
  Report Type: Spontaneous
  Country: US (occurrence: US)
  Receive Date: 20200814
  Receipt Date: 20200818
  Transmission Date: 20201103
  Serious: Yes (Other)
  Sender: FDA-Public Use
  Company Number: US-PFIZER INC-2020304256

PATIENT
  Age: 80 Year
  Sex: Female
  Weight: 63.5 kg

DRUGS (1)
  1. XELJANZ [Suspect]
     Active Substance: TOFACITINIB CITRATE
     Indication: RHEUMATOID ARTHRITIS
     Dosage: 5 MG, 2X/DAY(TWO A DAY ONE IN MORNING AND ONE IN EVENING)
     Dates: end: 202004

REACTIONS (4)
  - Fractured coccyx [Unknown]
  - Hypoacusis [Unknown]
  - Limb injury [Unknown]
  - Gait inability [Unknown]
